FAERS Safety Report 5214183-7 (Version None)
Quarter: 2007Q1

REPORT INFORMATION
  Report Type: 
  Country: None (occurrence: None)
  Receive Date: 20070116
  Receipt Date: 20070104
  Transmission Date: 20070707
  Serious: Yes (Other)
  Sender: FDA-Public Use
  Company Number: CHNY2007AU00456

PATIENT
  Age: 46 Year
  Sex: Male

DRUGS (1)
  1. NICOTINE [Suspect]
     Indication: SMOKING CESSATION THERAPY
     Dosage: 1 DF, QD, CHEWED
     Dates: start: 20070102, end: 20070103

REACTIONS (5)
  - ANAPHYLACTIC REACTION [None]
  - CHOKING SENSATION [None]
  - ERUCTATION [None]
  - NAUSEA [None]
  - SENSATION OF FOREIGN BODY [None]
